FAERS Safety Report 4450611-2 (Version None)
Quarter: 2004Q3

REPORT INFORMATION
  Report Type: 
  Country: None (occurrence: None)
  Receive Date: 20040913
  Receipt Date: 20040625
  Transmission Date: 20050211
  Serious: No
  Sender: FDA-Public Use
  Company Number: 2004-BP-05064BP(0)

PATIENT
  Age: 76 Year
  Sex: Female
  Weight: 119 kg

DRUGS (12)
  1. SPIRIVA [Suspect]
     Indication: CHRONIC OBSTRUCTIVE AIRWAYS DISEASE
     Dosage: 18 MCG (18 MCG), ONCE
     Dates: start: 20040616, end: 20040624
  2. ATROVENT [Concomitant]
  3. NORVASC [Concomitant]
  4. ZESTRIL [Concomitant]
  5. GLIPIZIDE [Concomitant]
  6. METOCLOPRAMIDE [Concomitant]
  7. ALBUTEROL [Concomitant]
  8. FUROSEMIDE [Concomitant]
  9. K-DUR 10 [Concomitant]
  10. MULTIVITAMIN [Concomitant]
  11. FLOVENT [Concomitant]
  12. FLONASE [Concomitant]

REACTIONS (7)
  - ASTHMA [None]
  - COUGH [None]
  - DRY THROAT [None]
  - NASAL CONGESTION [None]
  - NASAL DISCOMFORT [None]
  - PHARYNGOLARYNGEAL PAIN [None]
  - UPPER RESPIRATORY TRACT INFECTION [None]
